FAERS Safety Report 24171848 (Version 1)
Quarter: 2024Q3

REPORT INFORMATION
  Report Type: Spontaneous
  Country: NL (occurrence: NL)
  Receive Date: 20240805
  Receipt Date: 20240805
  Transmission Date: 20241017
  Serious: Yes (Death, Other)
  Sender: STRIDES
  Company Number: NL-STRIDES ARCOLAB LIMITED-2024SP009587

PATIENT
  Age: 1 Decade
  Sex: Female

DRUGS (12)
  1. MYCOPHENOLATE MOFETIL [Suspect]
     Active Substance: MYCOPHENOLATE MOFETIL
     Indication: Demyelinating polyneuropathy
     Dosage: 50 MILLIGRAM/KILOGRAM, QD
     Route: 065
  2. MYCOPHENOLATE MOFETIL [Suspect]
     Active Substance: MYCOPHENOLATE MOFETIL
     Indication: Prophylaxis against graft versus host disease
     Dosage: UNK, DOSE TAPPERED
     Route: 065
  3. MYCOPHENOLATE MOFETIL [Suspect]
     Active Substance: MYCOPHENOLATE MOFETIL
     Dosage: UNK, RESTARTED
     Route: 065
  4. MYCOPHENOLATE MOFETIL [Suspect]
     Active Substance: MYCOPHENOLATE MOFETIL
     Dosage: UNK, DOSE TAPPERED
     Route: 065
  5. MYCOPHENOLATE MOFETIL [Suspect]
     Active Substance: MYCOPHENOLATE MOFETIL
     Dosage: UNK, A COMBINATION TREATMENT OF IMMUNE-GLOBULIN AND MYCOPHENOLATE-MOFETIL
     Route: 065
  6. IMMUNE GLOBULIN NOS [Suspect]
     Active Substance: IMMUNE GLOBULIN NOS
     Indication: Demyelinating polyneuropathy
     Dosage: 1 MILLIGRAM/KILOGRAM
     Route: 042
  7. IMMUNE GLOBULIN NOS [Suspect]
     Active Substance: IMMUNE GLOBULIN NOS
     Indication: Prophylaxis against graft versus host disease
     Dosage: UNK (COMBINATION TREATMENT OF IMMUNE-GLOBULIN AND MYCOPHENOLATE-MOFETIL)
     Route: 065
  8. CYCLOSPORINE [Concomitant]
     Active Substance: CYCLOSPORINE
     Indication: Demyelinating polyneuropathy
     Dosage: 200 MG/L
     Route: 065
  9. CYCLOSPORINE [Concomitant]
     Active Substance: CYCLOSPORINE
     Indication: Prophylaxis against graft versus host disease
  10. PREDNISONE [Concomitant]
     Active Substance: PREDNISONE
     Indication: Demyelinating polyneuropathy
     Dosage: 1 MILLIGRAM/KILOGRAM
     Route: 065
  11. PREDNISONE [Concomitant]
     Active Substance: PREDNISONE
     Indication: Prophylaxis against graft versus host disease
     Dosage: UNK, DOSE TAPERED
     Route: 065
  12. PREDNISONE [Concomitant]
     Active Substance: PREDNISONE
     Dosage: UNK, DOSE INCREASED
     Route: 065

REACTIONS (3)
  - Rebound effect [Unknown]
  - Drug ineffective for unapproved indication [Fatal]
  - Disease progression [Fatal]
